FAERS Safety Report 6591328-8 (Version None)
Quarter: 2010Q1

REPORT INFORMATION
  Report Type: 
  Country: None (occurrence: None)
  Receive Date: 20100219
  Receipt Date: 20100209
  Transmission Date: 20100710
  Serious: Yes (Other)
  Sender: FDA-Public Use
  Company Number: US-JNJCH-2010004101

PATIENT
  Age: 5 Year
  Sex: Female
  Weight: 20.9 kg

DRUGS (2)
  1. PEDIACARE CHILDREN'S MULTI-SYMPTOM COLD (PE) [Suspect]
     Indication: COUGH
     Dosage: TEXT:ONE TEASPOON ONCE
     Route: 048
  2. PEDIACARE CHILDREN'S MULTI-SYMPTOM COLD (PE) [Suspect]
     Indication: NASAL CONGESTION

REACTIONS (1)
  - HALLUCINATION [None]
